FAERS Safety Report 10952547 (Version 1)
Quarter: 2015Q1

REPORT INFORMATION
  Report Type: Spontaneous
  Country: US (occurrence: None)
  Receive Date: 20150324
  Receipt Date: 20150324
  Transmission Date: 20150721
  Serious: Yes (Hospitalization)
  Sender: FDA-Public Use
  Company Number: None

PATIENT
  Age: 68 Year
  Sex: Male
  Weight: 93.7 kg

DRUGS (1)
  1. REGORAFENIB [Suspect]
     Active Substance: REGORAFENIB
     Indication: COLON CANCER METASTATIC
     Route: 048
     Dates: start: 20150227, end: 20150304

REACTIONS (6)
  - Abdominal pain [None]
  - Urinary tract obstruction [None]
  - Blood bilirubin increased [None]
  - Oedema peripheral [None]
  - Constipation [None]
  - Inferior vena caval occlusion [None]

NARRATIVE: CASE EVENT DATE: 20150322
